FAERS Safety Report 14306019 (Version 1)
Quarter: 2017Q4

REPORT INFORMATION
  Report Type: Spontaneous
  Country: US (occurrence: US)
  Receive Date: 20171219
  Receipt Date: 20171219
  Transmission Date: 20180321
  Serious: Yes (Hospitalization, Other)
  Sender: FDA-Public Use
  Company Number: US-PRESTIGE BRANDS -2037434

PATIENT
  Age: 89 Year
  Sex: Female
  Weight: 127 kg

DRUGS (9)
  1. MONTELUKAST [Concomitant]
     Active Substance: MONTELUKAST SODIUM
  2. CARVEDILOL. [Concomitant]
     Active Substance: CARVEDILOL
  3. FLUTICASONE. [Concomitant]
     Active Substance: FLUTICASONE
  4. ALLOPURINOL. [Concomitant]
     Active Substance: ALLOPURINOL
  5. LISINOPRIL. [Concomitant]
     Active Substance: LISINOPRIL
  6. FUROSEMIDE. [Concomitant]
     Active Substance: FUROSEMIDE
  7. NIX [Suspect]
     Active Substance: PERMETHRIN
     Indication: ACARODERMATITIS
     Route: 061
     Dates: start: 20171212, end: 20171213
  8. ADVAIR DISKUS [Concomitant]
     Active Substance: FLUTICASONE PROPIONATE\SALMETEROL XINAFOATE
  9. LEVOTHYROXINE. [Concomitant]
     Active Substance: LEVOTHYROXINE

REACTIONS (10)
  - Unresponsive to stimuli [Recovered/Resolved]
  - White blood cell count increased [Not Recovered/Not Resolved]
  - Incorrect drug administration duration [None]
  - Presyncope [Recovered/Resolved]
  - Fatigue [Recovered/Resolved]
  - Tremor [Recovered/Resolved]
  - Hypersensitivity [Unknown]
  - Drug prescribing error [None]
  - Blood pressure decreased [Recovered/Resolved]
  - Product use in unapproved indication [None]

NARRATIVE: CASE EVENT DATE: 20171213
